FAERS Safety Report 7395392-8 (Version None)
Quarter: 2011Q2

REPORT INFORMATION
  Report Type: 
  Country: None (occurrence: None)
  Receive Date: 20110405
  Receipt Date: 20110112
  Transmission Date: 20111010
  Serious: Yes (Hospitalization)
  Sender: FDA-Public Use
  Company Number: PHHY2011AU09987

PATIENT
  Age: 68 Year

DRUGS (21)
  1. PARACETAMOL [Concomitant]
     Dosage: UNK
  2. NIFEDIPINE [Concomitant]
     Dosage: UNK
  3. FELODIPINE [Concomitant]
     Dosage: UNK
  4. GLICLAZIDE [Concomitant]
     Dosage: UNK
  5. ISOSORBIDE MONONITRATE [Concomitant]
     Dosage: UNK
  6. OMEPRAZOLE [Suspect]
     Indication: REFLUX OESOPHAGITIS
     Dosage: 20 MG, DAILY
     Route: 048
  7. DILTIAZEM HCL [Concomitant]
     Dosage: UNK
  8. ALLOPURINOL [Concomitant]
     Dosage: UNK
  9. ATENOLOL [Concomitant]
     Dosage: UNK
  10. CITRAVESCENT                       /00167301/ [Concomitant]
     Dosage: UNK
  11. FOLIC ACID [Concomitant]
     Dosage: UNK
  12. PREDNISOLONE [Concomitant]
     Dosage: UNK
  13. TRANDOLAPRIL [Concomitant]
     Dosage: UNK
  14. FRUSEMIDE [Concomitant]
     Dosage: UNK
  15. SIMVASTATIN [Concomitant]
     Dosage: UNK
  16. TEMAZEPAM [Concomitant]
     Dosage: UNK
  17. GLYCERYL TRINITRATE [Concomitant]
     Dosage: UNK
  18. ASPIRIN [Concomitant]
     Dosage: UNK
  19. METHYLDOPA [Concomitant]
     Dosage: UNK
  20. SILDENAFIL [Concomitant]
     Dosage: UNK
  21. MYLANTA                                 /AUS/ [Concomitant]
     Dosage: UNK

REACTIONS (2)
  - ANGINA UNSTABLE [None]
  - HYPERTENSION [None]
